FAERS Safety Report 9479175 (Version 5)
Quarter: 2013Q4

REPORT INFORMATION
  Report Type: Spontaneous
  Country: US (occurrence: US)
  Receive Date: 20130827
  Receipt Date: 20131002
  Transmission Date: 20140711
  Serious: Yes (Hospitalization, Other)
  Sender: FDA-Public Use
  Company Number: US-BAXTER-2013BAX033167

PATIENT
  Age: 76 Year
  Sex: Female

DRUGS (2)
  1. DIANEAL LOW CALCIUM [Suspect]
     Indication: PERITONEAL DIALYSIS
     Dosage: 4 CYCLES
     Route: 033
     Dates: start: 201308, end: 20130821
  2. DIANEAL LOW CALCIUM [Suspect]
     Indication: PERITONEAL DIALYSIS
     Dosage: 4 CYCLES
     Route: 033
     Dates: start: 201308, end: 20130821

REACTIONS (4)
  - Gastric dilatation [Recovering/Resolving]
  - Hypotension [Recovered/Resolved]
  - Peritonitis [Recovering/Resolving]
  - Drug administration error [Recovering/Resolving]
